FAERS Safety Report 7879689 (Version 2)
Quarter: 2014Q1

REPORT INFORMATION
  Report Type: Spontaneous
  Country: FR (occurrence: FR)
  Receive Date: 20110331
  Receipt Date: 20140305
  Transmission Date: 20141002
  Serious: Yes (Death, Hospitalization)
  Sender: FDA-Public Use
  Company Number: FR-JNJFOC-20110310991

PATIENT
  Age: 76 Year
  Sex: Female

DRUGS (10)
  1. LEVOFLOXACIN [Suspect]
     Indication: PRODUCT USED FOR UNKNOWN INDICATION
     Route: 065
  2. PARACETAMOL [Suspect]
     Route: 065
  3. PARACETAMOL [Suspect]
     Indication: PRODUCT USED FOR UNKNOWN INDICATION
     Route: 065
  4. TOPALGIC [Suspect]
     Indication: FEMORAL NECK FRACTURE
     Route: 041
     Dates: start: 19980924, end: 19980924
  5. ULTRAM [Suspect]
     Indication: PRODUCT USED FOR UNKNOWN INDICATION
     Route: 065
  6. PROPOXYPHENE NAPSYLATE [Suspect]
     Indication: PRODUCT USED FOR UNKNOWN INDICATION
     Route: 065
  7. MORPHINE [Suspect]
     Indication: PRODUCT USED FOR UNKNOWN INDICATION
     Route: 065
  8. DILTIAZEM HCL [Concomitant]
     Indication: ANGINA PECTORIS
     Route: 048
  9. BUFLOMEDIL HYDROCHLORIDE [Concomitant]
     Route: 065
  10. LORAZEPAM [Concomitant]
     Route: 065

REACTIONS (2)
  - Death [Fatal]
  - Grand mal convulsion [Unknown]
